FAERS Safety Report 7679541-X (Version None)
Quarter: 2011Q3

REPORT INFORMATION
  Report Type: 
  Country: None (occurrence: None)
  Receive Date: 20110812
  Receipt Date: 20110805
  Transmission Date: 20111222
  Serious: Yes (Other)
  Sender: FDA-Public Use
  Company Number: MX-SANOFI-AVENTIS-2011SA025624

PATIENT
  Age: 68 Year
  Sex: Male

DRUGS (8)
  1. METOPROLOL TARTRATE [Concomitant]
     Route: 048
     Dates: start: 19860101
  2. ALFUZOSIN HYDROCHLORIDE [Suspect]
     Route: 048
     Dates: start: 20100201, end: 20110301
  3. ASPIRIN [Concomitant]
     Route: 048
  4. INDOMETHACIN [Concomitant]
     Indication: PAIN
     Route: 048
     Dates: start: 20090101
  5. KETOROLAC TROMETHAMINE [Concomitant]
     Indication: PAIN
     Route: 048
     Dates: start: 20090101
  6. CHLORTHALIDONE [Concomitant]
     Route: 048
     Dates: start: 19860101
  7. METHOCARBAMOL [Concomitant]
     Indication: PAIN
     Route: 048
     Dates: start: 20090101
  8. TRAMADOL HCL [Concomitant]
     Indication: PAIN
     Route: 048
     Dates: start: 20090101

REACTIONS (5)
  - BLADDER DISORDER [None]
  - OLIGURIA [None]
  - BLADDER SPASM [None]
  - MICTURITION URGENCY [None]
  - DRUG INEFFECTIVE [None]
